FAERS Safety Report 6863087-2 (Version None)
Quarter: 2010Q2

REPORT INFORMATION
  Report Type: 
  Country: None (occurrence: None)
  Receive Date: 20100528
  Receipt Date: 20100226
  Transmission Date: 20101027
  Serious: No
  Sender: FDA-Public Use
  Company Number: 007859

PATIENT
  Sex: Female
  Weight: 54.5 kg

DRUGS (2)
  1. LACOSAMIDE [Suspect]
     Indication: CONVULSION
     Dosage: (50 MG BID ORAL)
     Route: 048
     Dates: start: 20100201, end: 20100225
  2. LAMICTAL [Concomitant]

REACTIONS (1)
  - GAIT DISTURBANCE [None]
